FAERS Safety Report 12255398 (Version 1)
Quarter: 2016Q2

REPORT INFORMATION
  Report Type: Report from Study
  Country: US (occurrence: US)
  Receive Date: 20160412
  Receipt Date: 20160412
  Transmission Date: 20160815
  Serious: Yes (Other)
  Sender: FDA-Public Use
  Company Number: US-ROCHE-1609815

PATIENT
  Sex: Female
  Weight: 50.85 kg

DRUGS (15)
  1. XOLAIR [Suspect]
     Active Substance: OMALIZUMAB
     Indication: HYPERSENSITIVITY
     Route: 058
     Dates: start: 20131113
  2. PAROXETINE HCL [Concomitant]
     Active Substance: PAROXETINE HYDROCHLORIDE
     Route: 048
  3. VENTOLIN HFA [Concomitant]
     Active Substance: ALBUTEROL SULFATE
     Dosage: INHALE 2 PUFFS EVERY 4HRS.
     Route: 065
  4. XOLAIR [Suspect]
     Active Substance: OMALIZUMAB
     Indication: ASTHMA
     Route: 058
     Dates: start: 20131010
  5. ALBUTEROL SULFATE. [Concomitant]
     Active Substance: ALBUTEROL SULFATE
     Dosage: INHALATION NEBULIZATION SOLUTION, 2.5MG PER 3ML
     Route: 065
  6. PROMETHAZINE HCL [Concomitant]
     Active Substance: PROMETHAZINE HYDROCHLORIDE
     Route: 048
  7. ZYRTEC [Concomitant]
     Active Substance: CETIRIZINE HYDROCHLORIDE
  8. BENADRYL [Concomitant]
     Active Substance: DIPHENHYDRAMINE HYDROCHLORIDE
     Route: 048
  9. EPIPEN [Concomitant]
     Active Substance: EPINEPHRINE
     Dosage: 0.15 MG/0.3 ML
     Route: 030
  10. XANAX [Concomitant]
     Active Substance: ALPRAZOLAM
     Route: 048
  11. EPIPEN [Concomitant]
     Active Substance: EPINEPHRINE
     Dosage: 0.3MG/0.3 ML INJECT INTRAMUSCULARLY
     Route: 030
  12. SUMATRIPTAN SUCCINATE. [Concomitant]
     Active Substance: SUMATRIPTAN SUCCINATE
     Route: 048
  13. XOLAIR [Suspect]
     Active Substance: OMALIZUMAB
     Dosage: TOOK ONCE
     Route: 065
     Dates: start: 201109
  14. DULERA [Concomitant]
     Active Substance: FORMOTEROL FUMARATE DIHYDRATE\MOMETASONE FUROATE
     Dosage: INHALE 1 PUFF TWICE DAILY
     Route: 065
  15. FLUTICASONE PROPIONATE. [Concomitant]
     Active Substance: FLUTICASONE PROPIONATE
     Route: 045

REACTIONS (13)
  - Rash [Unknown]
  - Abdominal pain [Unknown]
  - Oral disorder [Unknown]
  - Anaphylactic reaction [Recovered/Resolved]
  - Herpes simplex [Unknown]
  - Infection [Recovered/Resolved]
  - Nephrolithiasis [Unknown]
  - Throat irritation [Unknown]
  - Abdominal tenderness [Unknown]
  - Chronic sinusitis [Unknown]
  - Food allergy [Unknown]
  - Asthma [Unknown]
  - Constipation [Unknown]
